FAERS Safety Report 5209777-9 (Version None)
Quarter: 2006Q4

REPORT INFORMATION
  Report Type: 
  Country: None (occurrence: None)
  Receive Date: 20061107
  Receipt Date: 20060620
  Transmission Date: 20070319
  Serious: No
  Sender: FDA-Public Use
  Company Number: IPX00002

PATIENT
  Age: 12 Year
  Sex: Male
  Weight: 27 kg

DRUGS (1)
  1. IPLEX [Suspect]
     Dosage: 13.25 MG DAILY SC
     Route: 058
     Dates: start: 20060619

REACTIONS (3)
  - HEADACHE [None]
  - NAUSEA [None]
  - PALLOR [None]
